FAERS Safety Report 5204023-4 (Version None)
Quarter: 2007Q1

REPORT INFORMATION
  Report Type: 
  Country: None (occurrence: None)
  Receive Date: 20070110
  Receipt Date: 20051101
  Transmission Date: 20070707
  Serious: Yes (Life-Threatening, Hospitalization)
  Sender: FDA-Public Use
  Company Number: US-BRISTOL-MYERS SQUIBB COMPANY-13128210

PATIENT
  Age: 69 Year
  Sex: Female
  Weight: 79 kg

DRUGS (5)
  1. ABILIFY [Suspect]
     Indication: MANIA
     Dosage: INITIATED AT 5 MG DIALY AND TITRATED UP TO 15 MG DAILY
     Route: 048
     Dates: start: 20050713, end: 20050731
  2. DEPAKOTE [Concomitant]
  3. ARICEPT [Concomitant]
  4. SYNTHROID [Concomitant]
  5. HYDROCHLOROTHIAZIDE [Concomitant]

REACTIONS (3)
  - MYALGIA [None]
  - NEUROLEPTIC MALIGNANT SYNDROME [None]
  - RHABDOMYOLYSIS [None]
